FAERS Safety Report 11185411 (Version 1)
Quarter: 2015Q2

REPORT INFORMATION
  Report Type: Report from Study
  Country: US (occurrence: US)
  Receive Date: 20150612
  Receipt Date: 20150612
  Transmission Date: 20150821
  Serious: No
  Sender: FDA-Public Use
  Company Number: US-CELGENEUS-USA-2015062153

PATIENT
  Sex: Female

DRUGS (3)
  1. THALOMID [Suspect]
     Active Substance: THALIDOMIDE
     Indication: OFF LABEL USE
  2. THALOMID [Suspect]
     Active Substance: THALIDOMIDE
     Indication: MENSTRUAL DISORDER
  3. THALOMID [Suspect]
     Active Substance: THALIDOMIDE
     Indication: MIGRAINE
     Route: 048

REACTIONS (1)
  - Adverse drug reaction [Unknown]
